FAERS Safety Report 24175813 (Version 1)
Quarter: 2024Q3

REPORT INFORMATION
  Report Type: Spontaneous
  Country: US (occurrence: US)
  Receive Date: 20240805
  Receipt Date: 20240805
  Transmission Date: 20241016
  Serious: No
  Sender: BAUSCH AND LOMB
  Company Number: US-BAUSCHBL-2024BNL030769

PATIENT
  Age: 83 Year
  Sex: Male

DRUGS (2)
  1. LATANOPROST [Suspect]
     Active Substance: LATANOPROST
     Indication: Macular degeneration
     Dosage: 1 DROP IN EACH EYE NIGHTLY
     Route: 047
     Dates: start: 2023
  2. LATANOPROST [Suspect]
     Active Substance: LATANOPROST
     Indication: Product use in unapproved indication

REACTIONS (5)
  - Eye pruritus [Unknown]
  - Eye irritation [Recovered/Resolved]
  - Product quality issue [Unknown]
  - Product use in unapproved indication [Unknown]
  - Product prescribing issue [Unknown]

NARRATIVE: CASE EVENT DATE: 20230101
